FAERS Safety Report 16743177 (Version 6)
Quarter: 2020Q3

REPORT INFORMATION
  Report Type: Report from Study
  Country: PL (occurrence: PL)
  Receive Date: 20190827
  Receipt Date: 20200702
  Transmission Date: 20201102
  Serious: Yes (Hospitalization, Disabling)
  Sender: FDA-Public Use
  Company Number: PL-ROCHE-2391197

PATIENT
  Age: 67 Year
  Sex: Female
  Weight: 55 kg

DRUGS (20)
  1. POLTRAM COMBO [Concomitant]
     Active Substance: ACETAMINOPHEN\TRAMADOL HYDROCHLORIDE
     Indication: PAIN
     Route: 065
     Dates: start: 20190501, end: 20200415
  2. FEROPLEX [Concomitant]
     Indication: ANAEMIA
     Route: 065
     Dates: start: 20190619, end: 20190721
  3. ESTAZOLAM. [Concomitant]
     Active Substance: ESTAZOLAM
     Route: 065
     Dates: start: 20190819, end: 20190819
  4. KCL + NACL 0.9% [Concomitant]
     Route: 065
     Dates: start: 20190819, end: 20190819
  5. LOPERAMIDE [Concomitant]
     Active Substance: LOPERAMIDE
     Indication: RECTAL TENESMUS
     Route: 065
     Dates: start: 20190810
  6. OPTILYTE [Concomitant]
     Active Substance: CALCIUM CHLORIDE\MAGNESIUM CHLORIDE\POTASSIUM CHLORIDE\SODIUM ACETATE\SODIUM CHLORIDE\SODIUM CITRATE
     Route: 065
     Dates: start: 20190730, end: 20190730
  7. OPTILYTE [Concomitant]
     Active Substance: CALCIUM CHLORIDE\MAGNESIUM CHLORIDE\POTASSIUM CHLORIDE\SODIUM ACETATE\SODIUM CHLORIDE\SODIUM CITRATE
     Route: 065
     Dates: start: 20191002, end: 20191002
  8. ATEZOLIZUMAB. [Suspect]
     Active Substance: ATEZOLIZUMAB
     Indication: NEOPLASM
     Dosage: DATE OF MOST RECENT DOSE OF ATEZOLIZUMAB PRIOR TO SAE ONSET: 19/AUG/2019 (AT 13:10)
     Route: 041
     Dates: start: 20190617
  9. ESTAZOLAM. [Concomitant]
     Active Substance: ESTAZOLAM
     Indication: INSOMNIA
     Route: 065
     Dates: start: 20190826, end: 20190829
  10. PARACETAMOLUM [Concomitant]
     Active Substance: ACETAMINOPHEN
     Indication: PREMEDICATION
     Route: 065
     Dates: start: 20190819, end: 20190820
  11. KETONAL [KETOPROFEN] [Concomitant]
     Active Substance: KETOPROFEN
     Indication: PYREXIA
     Route: 065
     Dates: start: 20190729, end: 20190729
  12. OPTILYTE [Concomitant]
     Active Substance: CALCIUM CHLORIDE\MAGNESIUM CHLORIDE\POTASSIUM CHLORIDE\SODIUM ACETATE\SODIUM CHLORIDE\SODIUM CITRATE
     Route: 065
     Dates: start: 20190621, end: 20190621
  13. OPTILYTE [Concomitant]
     Active Substance: CALCIUM CHLORIDE\MAGNESIUM CHLORIDE\POTASSIUM CHLORIDE\SODIUM ACETATE\SODIUM CHLORIDE\SODIUM CITRATE
     Route: 065
     Dates: start: 20190729, end: 20190729
  14. KCL + NACL 0.9% [Concomitant]
     Indication: PREMEDICATION
     Route: 065
     Dates: start: 20190709, end: 20190709
  15. MONOVER [Concomitant]
     Indication: ANAEMIA
     Route: 065
     Dates: start: 20190722, end: 20190722
  16. METOCLOPRAMIDUM [METOCLOPRAMIDE] [Concomitant]
     Indication: VOMITING
     Route: 065
     Dates: start: 20190820, end: 20190820
  17. RO6874281 (FAP IL2V MAB) [Suspect]
     Active Substance: SIMLUKAFUSP ALFA
     Indication: NEOPLASM
     Dosage: DATE OF MOST RECENT DOSE OF RO6874281 PRIOR TO SAE ONSET: 19/AUG/2019 (AT 14:45), 10 MG
     Route: 042
     Dates: start: 20190617
  18. ESTAZOLAM. [Concomitant]
     Active Substance: ESTAZOLAM
     Route: 065
     Dates: start: 20190901, end: 20190901
  19. ONDANSETRON [Concomitant]
     Active Substance: ONDANSETRON
     Indication: VOMITING
     Route: 065
     Dates: start: 20190729, end: 20190729
  20. OPTILYTE [Concomitant]
     Active Substance: CALCIUM CHLORIDE\MAGNESIUM CHLORIDE\POTASSIUM CHLORIDE\SODIUM ACETATE\SODIUM CHLORIDE\SODIUM CITRATE
     Indication: FATIGUE
     Route: 065
     Dates: start: 20190709, end: 20190709

REACTIONS (1)
  - Female genital tract fistula [Recovered/Resolved]

NARRATIVE: CASE EVENT DATE: 20190820
